FAERS Safety Report 12545128 (Version 2)
Quarter: 2016Q3

REPORT INFORMATION
  Report Type: Spontaneous
  Country: US (occurrence: US)
  Receive Date: 20160711
  Receipt Date: 20160818
  Transmission Date: 20161109
  Serious: Yes (Other)
  Sender: FDA-Public Use
  Company Number: US-AMGEN-USASP2016087674

PATIENT
  Age: 62 Year
  Sex: Female
  Weight: 73.92 kg

DRUGS (1)
  1. PROLIA [Suspect]
     Active Substance: DENOSUMAB
     Indication: OSTEOPOROSIS POSTMENOPAUSAL
     Dosage: 60 MG, Q6MO
     Route: 058
     Dates: start: 20160415

REACTIONS (11)
  - Mobility decreased [Recovering/Resolving]
  - Musculoskeletal discomfort [Recovering/Resolving]
  - Influenza like illness [Recovering/Resolving]
  - Pain [Not Recovered/Not Resolved]
  - Nausea [Recovering/Resolving]
  - Pain in extremity [Not Recovered/Not Resolved]
  - Abasia [Not Recovered/Not Resolved]
  - Sleep disorder [Unknown]
  - Back pain [Recovering/Resolving]
  - Arthralgia [Not Recovered/Not Resolved]
  - Spinal pain [Unknown]

NARRATIVE: CASE EVENT DATE: 2016
